FAERS Safety Report 24527213 (Version 1)
Quarter: 2024Q4

REPORT INFORMATION
  Report Type: Spontaneous
  Country: ES (occurrence: ES)
  Receive Date: 20241021
  Receipt Date: 20241021
  Transmission Date: 20250115
  Serious: No
  Sender: ROCHE
  Company Number: ES-ROCHE-3451077

PATIENT
  Age: 54 Year
  Sex: Male

DRUGS (2)
  1. COBIMETINIB [Suspect]
     Active Substance: COBIMETINIB
     Indication: Erdheim-Chester disease
     Route: 065
  2. COBIMETINIB [Suspect]
     Active Substance: COBIMETINIB
     Route: 065

REACTIONS (1)
  - Dermatitis acneiform [Recovered/Resolved]
